FAERS Safety Report 4849403-1 (Version None)
Quarter: 2005Q4

REPORT INFORMATION
  Report Type: 
  Country: None (occurrence: None)
  Receive Date: 20051207
  Receipt Date: 20051128
  Transmission Date: 20060501
  Serious: Yes (Hospitalization)
  Sender: FDA-Public Use
  Company Number: 2005US001398

PATIENT
  Age: 22 Year
  Sex: Female

DRUGS (7)
  1. PROGRAF [Suspect]
     Indication: PROPHYLAXIS AGAINST TRANSPLANT REJECTION
     Dosage: 3.5 MG, BID, ORAL
     Route: 048
     Dates: start: 20050508
  2. MYCOPHENOLATE MOFETIL (MYCOPHENOLATE MOFETIL) [Suspect]
     Indication: PROPHYLAXIS AGAINST TRANSPLANT REJECTION
     Dosage: 1000.00 MG, BID, ORAL
     Route: 048
     Dates: start: 20050509
  3. PREDNISONE [Suspect]
     Indication: PROPHYLAXIS AGAINST TRANSPLANT REJECTION
     Dosage: 10.00 MG, UID/QD, ORAL
     Dates: start: 20050510
  4. ZANTAC [Concomitant]
  5. ORTHO TRI-CYCLEN [Concomitant]
  6. VALCYTE [Concomitant]
  7. LEVAQUIN [Concomitant]

REACTIONS (3)
  - CYTOMEGALOVIRUS INFECTION [None]
  - PYELONEPHRITIS [None]
  - URINARY TRACT INFECTION [None]
